FAERS Safety Report 8471657 (Version 3)
Quarter: 2013Q2

REPORT INFORMATION
  Report Type: Spontaneous
  Country: US (occurrence: US)
  Receive Date: 20120322
  Receipt Date: 20130405
  Transmission Date: 20140414
  Serious: Yes (Other)
  Sender: FDA-Public Use
  Company Number: US-BAYER-2012-024421

PATIENT
  Age: 19 Year
  Sex: Female
  Weight: 102.49 kg

DRUGS (1)
  1. MIRENA [Suspect]
     Indication: CONTRACEPTION
     Dosage: 20 MCG/24HR, CONT
     Route: 015
     Dates: start: 20120215, end: 20120524

REACTIONS (5)
  - Post procedural haemorrhage [Recovered/Resolved]
  - Uterine haemorrhage [None]
  - Abdominal pain [None]
  - Feeling abnormal [None]
  - Device expulsion [None]
